FAERS Safety Report 4555936-8 (Version None)
Quarter: 2005Q1

REPORT INFORMATION
  Report Type: 
  Country: None (occurrence: None)
  Receive Date: 20050112
  Receipt Date: 20040730
  Transmission Date: 20050727
  Serious: Yes (Other)
  Sender: FDA-Public Use
  Company Number: WAES 0407USA02579

PATIENT
  Sex: Male

DRUGS (2)
  1. DECADRON [Suspect]
     Dosage: PO
     Route: 048
  2. THALOMID [Suspect]
     Dosage: PO
     Route: 048

REACTIONS (1)
  - CONVULSION [None]
